FAERS Safety Report 15727292 (Version 2)
Quarter: 2019Q1

REPORT INFORMATION
  Report Type: Spontaneous
  Country: DE (occurrence: DE)
  Receive Date: 20181217
  Receipt Date: 20190109
  Transmission Date: 20190417
  Serious: Yes (Other)
  Sender: FDA-Public Use
  Company Number: DE-HORIZON-RAV-0229-2018

PATIENT
  Age: 4 Year
  Sex: Female
  Weight: 14 kg

DRUGS (3)
  1. SODIUM BENZOATE [Concomitant]
     Active Substance: SODIUM BENZOATE
     Dosage: 7 CAPSULES (500 MG) PER DAY
  2. RAVICTI [Suspect]
     Active Substance: GLYCEROL PHENYLBUTYRATE
     Indication: ORNITHINE TRANSCARBAMOYLASE DEFICIENCY
     Dosage: 3 (EVERY 8 HOURS) X 2.0 ML (10 ML PER SQUARE METER BODY SURFACE)
     Route: 048
     Dates: start: 20181205, end: 20181211
  3. L-ARGININE [Concomitant]
     Active Substance: ARGININE
     Dosage: 5 CAPSULES (500 MG) PER DAY
     Route: 048
     Dates: start: 201608

REACTIONS (10)
  - Fatigue [Recovered/Resolved]
  - Gait disturbance [Recovered/Resolved]
  - Nausea [Recovered/Resolved]
  - Dizziness [Recovered/Resolved]
  - Vomiting [Recovered/Resolved]
  - Headache [Recovered/Resolved]
  - Skin odour abnormal [Recovered/Resolved]
  - Ammonia increased [Recovered/Resolved]
  - Abdominal pain upper [Recovered/Resolved]
  - Decreased appetite [Unknown]

NARRATIVE: CASE EVENT DATE: 20181205
